FAERS Safety Report 9838449 (Version 1)
Quarter: 2014Q1

REPORT INFORMATION
  Report Type: Spontaneous
  Country: US (occurrence: US)
  Receive Date: 20140123
  Receipt Date: 20140123
  Transmission Date: 20141002
  Serious: Yes (Other)
  Sender: FDA-Public Use
  Company Number: US-ASTELLAS-2013US001041

PATIENT
  Sex: Female

DRUGS (3)
  1. TARCEVA [Suspect]
     Indication: OVARIAN CANCER
     Dosage: UNK
     Route: 048
     Dates: start: 2006, end: 201111
  2. TARCEVA [Suspect]
     Dosage: UNK
     Route: 048
     Dates: start: 201210, end: 201210
  3. TARCEVA [Suspect]
     Dosage: UNK
     Route: 048
     Dates: start: 201301

REACTIONS (3)
  - Off label use [Unknown]
  - Ovarian cancer recurrent [Unknown]
  - Renal failure [Not Recovered/Not Resolved]
